FAERS Safety Report 17882468 (Version 1)
Quarter: 2020Q2

REPORT INFORMATION
  Report Type: Report from Study
  Country: None (occurrence: US)
  Receive Date: 20200610
  Receipt Date: 20200610
  Transmission Date: 20200714
  Serious: Yes (Other)
  Sender: FDA-Public Use
  Company Number: US-ABBVIE-20K-163-3431406-00

PATIENT
  Sex: Female

DRUGS (2)
  1. HUMIRA [Suspect]
     Active Substance: ADALIMUMAB
     Indication: ANKYLOSING SPONDYLITIS
     Dosage: CITRATE FREE
     Route: 058
  2. HUMIRA [Suspect]
     Active Substance: ADALIMUMAB
     Indication: CROHN^S DISEASE

REACTIONS (8)
  - Peripheral venous disease [Unknown]
  - Hypoaesthesia [Unknown]
  - Autoimmune disorder [Unknown]
  - Hypersensitivity [Unknown]
  - Sleep apnoea syndrome [Recovering/Resolving]
  - Carpal tunnel syndrome [Unknown]
  - Nerve compression [Unknown]
  - Systemic lupus erythematosus [Unknown]
